FAERS Safety Report 7685807-X (Version None)
Quarter: 2011Q3

REPORT INFORMATION
  Report Type: 
  Country: None (occurrence: None)
  Receive Date: 20110815
  Receipt Date: 20110815
  Transmission Date: 20111222
  Serious: Yes (Other)
  Sender: FDA-Public Use
  Company Number: None

PATIENT
  Age: 88 Year
  Sex: Male
  Weight: 83.914 kg

DRUGS (2)
  1. UNI-SOLVE (OTC) [Suspect]
     Indication: MEDICAL DEVICE REMOVAL
     Dates: start: 20110501, end: 20110701
  2. SKIN-PREP (OTC) [Concomitant]
     Indication: PREOPERATIVE CARE
     Dates: start: 20110501, end: 20110701

REACTIONS (3)
  - ANXIETY [None]
  - PRODUCT QUALITY ISSUE [None]
  - RASH [None]
